FAERS Safety Report 6903903-9 (Version None)
Quarter: 2010Q3

REPORT INFORMATION
  Report Type: 
  Country: None (occurrence: None)
  Receive Date: 20100804
  Receipt Date: 20090126
  Transmission Date: 20110219
  Serious: Yes (Other)
  Sender: FDA-Public Use
  Company Number: US-PFIZER INC-2008150672

PATIENT
  Sex: Female
  Weight: 63.492 kg

DRUGS (7)
  1. LYRICA [Suspect]
     Indication: PAIN IN EXTREMITY
     Dosage: 25 MG, 1X/DAY
     Route: 048
     Dates: start: 20081124, end: 20081127
  2. LYRICA [Suspect]
     Indication: MYALGIA
  3. LEVOXYL [Concomitant]
     Route: 048
  4. SERTRALINE [Concomitant]
     Route: 048
  5. HYDROCHLOROTHIAZIDE [Concomitant]
     Route: 048
  6. POTASSIUM CHLORIDE [Concomitant]
     Route: 048
  7. TAMOXIFEN CITRATE [Concomitant]
     Indication: BREAST CANCER
     Route: 048

REACTIONS (4)
  - ABDOMINAL PAIN UPPER [None]
  - CONSTIPATION [None]
  - DIZZINESS [None]
  - FALL [None]
